FAERS Safety Report 7562918-0 (Version None)
Quarter: 2011Q2

REPORT INFORMATION
  Report Type: 
  Country: None (occurrence: None)
  Receive Date: 20110622
  Receipt Date: 20110607
  Transmission Date: 20111010
  Serious: Yes (Death)
  Sender: FDA-Public Use
  Company Number: US-ROCHE-783400

PATIENT

DRUGS (3)
  1. BLINDED AVE5026 [Suspect]
     Indication: NEOPLASM PROPHYLAXIS
     Route: 065
  2. CCI-779 [Suspect]
     Indication: NEOPLASM PROPHYLAXIS
     Dosage: CYCLE (28 DAYS): ON DAY 1, 8, 15 AND 22
     Route: 042
     Dates: start: 20101020, end: 20101025
  3. BEVACIZUMAB [Suspect]
     Indication: NEOPLASM PROPHYLAXIS
     Dosage: CYCLE (28 DAYS): OVER 30-90 MINUTES ON DAY 1 AND 15, LAST DOSE RECEIVED ON 20 DECEMBER 2010.
     Route: 042
     Dates: start: 20101020

REACTIONS (1)
  - SUDDEN DEATH [None]
